FAERS Safety Report 17618871 (Version 1)
Quarter: 2020Q2

REPORT INFORMATION
  Report Type: Spontaneous
  Country: US (occurrence: US)
  Receive Date: 20200403
  Receipt Date: 20200403
  Transmission Date: 20200713
  Serious: No
  Sender: FDA-Public Use
  Company Number: US-AMGEN-USASP2020052758

PATIENT

DRUGS (1)
  1. PROLIA [Suspect]
     Active Substance: DENOSUMAB
     Indication: PRODUCT USED FOR UNKNOWN INDICATION
     Dosage: UNK
     Route: 065

REACTIONS (10)
  - Rash [Unknown]
  - Feeling abnormal [Unknown]
  - Macule [Unknown]
  - Erythema [Unknown]
  - Dyspnoea [Unknown]
  - Pain [Unknown]
  - Rash pruritic [Unknown]
  - Papule [Unknown]
  - Tinnitus [Unknown]
  - Dry skin [Unknown]

NARRATIVE: CASE EVENT DATE: 20191216
